FAERS Safety Report 5996188-1 (Version None)
Quarter: 2008Q4

REPORT INFORMATION
  Report Type: 
  Country: None (occurrence: None)
  Receive Date: 20081212
  Receipt Date: 20081010
  Transmission Date: 20090506
  Serious: No
  Sender: FDA-Public Use
  Company Number: US-ABBOTT-08P-163-0481252-00

PATIENT
  Sex: Female
  Weight: 74.91 kg

DRUGS (11)
  1. HUMIRA [Suspect]
     Indication: CROHN'S DISEASE
     Route: 058
     Dates: start: 20081001
  2. PROPANTHELINE [Suspect]
     Indication: FLATULENCE
     Route: 048
     Dates: end: 20081004
  3. HYDROCHLOROTHIAZIDE [Concomitant]
     Indication: FLUID RETENTION
  4. BUDESONIDE [Concomitant]
     Indication: CROHN'S DISEASE
  5. PROVELLA-14 [Concomitant]
     Indication: MENOPAUSE
  6. LABETALOL HYDROCHLORIDE [Concomitant]
     Indication: DRUG USE FOR UNKNOWN INDICATION
  7. LINUM USITATISSIMUM SEED OIL [Concomitant]
     Indication: DRUG USE FOR UNKNOWN INDICATION
  8. CIMICIFUGA RACEMOSA ROOT [Concomitant]
     Indication: DRUG USE FOR UNKNOWN INDICATION
  9. CALCIUM CARBONATE [Concomitant]
     Indication: DRUG USE FOR UNKNOWN INDICATION
  10. CENTRUM [Concomitant]
     Indication: DRUG USE FOR UNKNOWN INDICATION
  11. PROBIOTICS [Concomitant]
     Indication: DRUG USE FOR UNKNOWN INDICATION

REACTIONS (3)
  - APHASIA [None]
  - FACIAL PALSY [None]
  - FACIAL PARESIS [None]
